FAERS Safety Report 6266697-9 (Version None)
Quarter: 2009Q3

REPORT INFORMATION
  Report Type: 
  Country: None (occurrence: None)
  Receive Date: 20090714
  Receipt Date: 20090703
  Transmission Date: 20100115
  Serious: Yes (Hospitalization, Other)
  Sender: FDA-Public Use
  Company Number: NP-RANBAXY-2009RR-25107

PATIENT
  Age: 64 Year
  Sex: Female

DRUGS (2)
  1. IBUPROFEN [Suspect]
     Indication: TOOTHACHE
     Dosage: 400 MG, UNK
     Route: 048
  2. PARACETAMOL [Concomitant]
     Dosage: 500 MG, UNK
     Route: 048

REACTIONS (1)
  - ACUTE GENERALISED EXANTHEMATOUS PUSTULOSIS [None]
